FAERS Safety Report 9696182 (Version 1)
Quarter: 2013Q4

REPORT INFORMATION
  Report Type: Spontaneous
  Country: US (occurrence: US)
  Receive Date: 20131119
  Receipt Date: 20131119
  Transmission Date: 20140711
  Serious: Yes (Hospitalization)
  Sender: FDA-Public Use
  Company Number: US-ACTAVIS-2013-20660

PATIENT
  Sex: Male
  Weight: 98 kg

DRUGS (1)
  1. VALPROIC ACID [Suspect]
     Indication: TEMPORAL LOBE EPILEPSY
     Dosage: 2 DF, BID
     Route: 048
     Dates: start: 2013, end: 201310

REACTIONS (6)
  - Dysarthria [Recovered/Resolved]
  - Dizziness [Recovered/Resolved]
  - Tunnel vision [Recovered/Resolved]
  - Nausea [Recovered/Resolved]
  - Glycosylated haemoglobin increased [Not Recovered/Not Resolved]
  - Type 2 diabetes mellitus [Not Recovered/Not Resolved]
